FAERS Safety Report 7491856-7 (Version None)
Quarter: 2011Q1

REPORT INFORMATION
  Report Type: 
  Country: None (occurrence: None)
  Receive Date: 20110318
  Receipt Date: 20101202
  Transmission Date: 20110831
  Serious: Yes (Other)
  Sender: FDA-Public Use
  Company Number: 3-1210-92

PATIENT
  Age: 91 Year
  Sex: Female

DRUGS (3)
  1. DERMOTIC [Suspect]
     Indication: ECZEMA
     Dosage: TOPICAL
     Route: 061
  2. VITAMIN TAB [Concomitant]
  3. METOPROLOL TARTRATE [Concomitant]

REACTIONS (1)
  - BURNING SENSATION [None]
